FAERS Safety Report 11989383 (Version 5)
Quarter: 2016Q3

REPORT INFORMATION
  Report Type: Spontaneous
  Country: BR (occurrence: BR)
  Receive Date: 20160202
  Receipt Date: 20160908
  Transmission Date: 20161109
  Serious: Yes (Other)
  Sender: FDA-Public Use
  Company Number: BR-JNJFOC-20160200731

PATIENT
  Age: 59 Year
  Sex: Female

DRUGS (5)
  1. ARAVA [Concomitant]
     Active Substance: LEFLUNOMIDE
     Route: 065
  2. SIMPONI [Suspect]
     Active Substance: GOLIMUMAB
     Indication: RHEUMATOID ARTHRITIS
     Route: 058
     Dates: start: 20150901, end: 20160201
  3. TECNOMET [Concomitant]
     Active Substance: METHOTREXATE
     Route: 065
  4. CALCIUM [Concomitant]
     Active Substance: CALCIUM
     Route: 065
  5. ENALAPRIL [Concomitant]
     Active Substance: ENALAPRIL
     Route: 065

REACTIONS (5)
  - Flavivirus infection [Unknown]
  - Chikungunya virus infection [Unknown]
  - Drug dose omission [Unknown]
  - Device malfunction [Unknown]
  - Dengue fever [Unknown]

NARRATIVE: CASE EVENT DATE: 201601
